FAERS Safety Report 4587160-7 (Version None)
Quarter: 2005Q1

REPORT INFORMATION
  Report Type: 
  Country: None (occurrence: None)
  Receive Date: 20050218
  Receipt Date: 20050209
  Transmission Date: 20050727
  Serious: Yes (Other)
  Sender: FDA-Public Use
  Company Number: BE-JNJFOC-20050200439

PATIENT
  Sex: Male
  Weight: 115 kg

DRUGS (7)
  1. SPORANOX [Suspect]
     Indication: ONYCHOMYCOSIS
     Route: 049
  2. ZOCOR [Concomitant]
     Route: 049
  3. PERSENTINE [Concomitant]
  4. ASAFLOW [Concomitant]
     Route: 049
  5. COMBURIC [Concomitant]
     Route: 049
  6. COMBURIC [Concomitant]
     Route: 049
  7. AMLOR [Concomitant]

REACTIONS (2)
  - BRADYARRHYTHMIA [None]
  - VENTRICULAR EXTRASYSTOLES [None]
